FAERS Safety Report 6905635-X (Version None)
Quarter: 2010Q3

REPORT INFORMATION
  Report Type: 
  Country: None (occurrence: None)
  Receive Date: 20100802
  Receipt Date: 20100722
  Transmission Date: 20110219
  Serious: Yes (Other)
  Sender: FDA-Public Use
  Company Number: DSU-2010-03555

PATIENT
  Age: 71 Year
  Sex: Female
  Weight: 66.6788 kg

DRUGS (10)
  1. EVOXAC [Suspect]
     Indication: SJOGREN'S SYNDROME
     Dosage: 90 MG (30 MG, TID), PER ORAL; 60 MG (30 MG, BID), PER ORAL
     Route: 048
     Dates: start: 20060101, end: 20090101
  2. EVOXAC [Suspect]
     Indication: SJOGREN'S SYNDROME
     Dosage: 90 MG (30 MG, TID), PER ORAL; 60 MG (30 MG, BID), PER ORAL
     Route: 048
     Dates: start: 20090101, end: 20100701
  3. LEVOTHYROXINE SODIUM [Concomitant]
  4. PLAQUENIL (HYDROXYCHLOROQUINE) (HYDROXYCHLOROQUINE) [Concomitant]
  5. GABAPENTIN (GABAPENTIN) (GABAPENTIN) [Concomitant]
  6. XANAX [Concomitant]
  7. AMITRIPTYLINE (AMITRIPTYLINE) (AMITRIPTYLINE) [Concomitant]
  8. BUSPIRONE (BUSPIRONE) (BUSPIRONE) [Concomitant]
  9. LANSOPRAZOLE [Concomitant]
  10. COZAAR [Concomitant]

REACTIONS (7)
  - BLOOD SODIUM DECREASED [None]
  - DERMATITIS CONTACT [None]
  - DRY MOUTH [None]
  - DRY THROAT [None]
  - INCORRECT DOSE ADMINISTERED [None]
  - INCORRECT DRUG ADMINISTRATION DURATION [None]
  - KNEE ARTHROPLASTY [None]
